FAERS Safety Report 8545888-8 (Version None)
Quarter: 2012Q3

REPORT INFORMATION
  Report Type: 
  Country: None (occurrence: None)
  Receive Date: 20120727
  Receipt Date: 20111222
  Transmission Date: 20120928
  Serious: No
  Sender: FDA-Public Use
  Company Number: US-ASTRAZENECA-2011SE70119

PATIENT
  Age: 49 Year
  Sex: Male

DRUGS (2)
  1. SEROQUEL [Suspect]
     Route: 048
  2. SEROQUEL [Suspect]
     Indication: CONVULSION
     Route: 048

REACTIONS (4)
  - OFF LABEL USE [None]
  - CONCUSSION [None]
  - AGGRESSION [None]
  - DRUG DOSE OMISSION [None]
